FAERS Safety Report 21216961 (Version 1)
Quarter: 2022Q3

REPORT INFORMATION
  Report Type: Spontaneous
  Country: BR (occurrence: BR)
  Receive Date: 20220816
  Receipt Date: 20220816
  Transmission Date: 20221026
  Serious: Yes (Life-Threatening, Hospitalization)
  Sender: FDA-Public Use
  Company Number: BR-NOVARTISPH-NVSC2022BR184753

PATIENT
  Sex: Male

DRUGS (1)
  1. AMOXICILLIN\CLAVULANATE POTASSIUM [Suspect]
     Active Substance: AMOXICILLIN\CLAVULANATE POTASSIUM
     Indication: Product used for unknown indication
     Dosage: CONCENTRATION: 250+62.5 MG/5 ML 75 ML
     Route: 065

REACTIONS (4)
  - Feeling abnormal [Unknown]
  - Hypersensitivity [Recovering/Resolving]
  - Pain [Unknown]
  - Dyspnoea [Unknown]
